FAERS Safety Report 9773575 (Version 1)
Quarter: 2013Q4

REPORT INFORMATION
  Report Type: Spontaneous
  Country: TR (occurrence: None)
  Receive Date: 20131217
  Receipt Date: 20131217
  Transmission Date: 20140711
  Serious: Yes (Other)
  Sender: FDA-Public Use
  Company Number: KAD201312-001586

PATIENT
  Sex: 0

DRUGS (2)
  1. RIBAVIRIN (RIBAVIRIN) [Suspect]
     Indication: MEASLES
     Route: 042
  2. RETINOL [Suspect]
     Indication: MEASLES

REACTIONS (2)
  - Renal failure acute [None]
  - Off label use [None]
